FAERS Safety Report 7556603-9 (Version None)
Quarter: 2011Q2

REPORT INFORMATION
  Report Type: 
  Country: None (occurrence: None)
  Receive Date: 20110620
  Receipt Date: 20110610
  Transmission Date: 20111010
  Serious: Yes (Other)
  Sender: FDA-Public Use
  Company Number: AR-AMGEN-ARGSP2011028366

PATIENT
  Age: 59 Year
  Sex: Female
  Weight: 83 kg

DRUGS (6)
  1. OMEPRAZOLE [Concomitant]
     Dosage: UNK
     Route: 048
  2. ENALAPRIL MALEATE [Concomitant]
     Dosage: 10 MG, UNK
     Route: 048
  3. DELTISONA B                        /01242801/ [Suspect]
     Indication: RHEUMATOID ARTHRITIS
     Dosage: 8 MG, 1X/DAY
     Route: 048
     Dates: start: 20030101, end: 20110401
  4. ENBREL [Suspect]
     Indication: RHEUMATOID ARTHRITIS
     Dosage: 50 MG, WEEKLY
     Route: 058
     Dates: start: 20030101
  5. CLONAZEPAM [Concomitant]
     Dosage: 5 MG, UNK
     Route: 048
  6. FOLIC ACID [Concomitant]
     Dosage: 5 MG, UNK
     Route: 048

REACTIONS (4)
  - DRUG WITHDRAWAL SYNDROME [None]
  - NERVOUSNESS [None]
  - TREMOR [None]
  - DYSPNOEA [None]
